FAERS Safety Report 9520077 (Version 3)
Quarter: 2013Q3

REPORT INFORMATION
  Report Type: Report from Study
  Country: AU (occurrence: AU)
  Receive Date: 20130912
  Receipt Date: 20130924
  Transmission Date: 20140515
  Serious: Yes (Other)
  Sender: FDA-Public Use
  Company Number: PHRM2006AU00879

PATIENT
  Age: 41 Year
  Sex: Male
  Weight: 110 kg

DRUGS (13)
  1. CLOZARIL [Suspect]
     Indication: SCHIZOPHRENIA
     Dosage: 600 MG, QD
     Route: 048
     Dates: start: 20040316
  2. CLOZARIL [Suspect]
     Dosage: 200 MG,
     Route: 048
  3. CLOZARIL [Suspect]
     Dosage: UNK
     Dates: start: 200404
  4. CLOZARIL [Suspect]
     Dosage: 200 MG, NOCTE
     Route: 048
     Dates: start: 20130412
  5. CLOZARIL [Suspect]
     Dosage: 200 MG, NOCTE
     Dates: start: 20130819
  6. CLOZARIL [Suspect]
     Dosage: UNK
     Route: 048
  7. VENLAFAXINE [Concomitant]
     Dosage: UNK UKN, UNK
     Route: 048
  8. SEROQUEL [Concomitant]
     Dosage: 400 MG, NOCTE
     Route: 048
  9. EFEXOR [Concomitant]
     Dosage: 225 MG, MANE
     Route: 048
  10. LIPITOR [Concomitant]
     Dosage: 40 MG, QD
     Route: 048
  11. DIABEX S.R. [Concomitant]
     Dosage: 2000 MG, QD
     Route: 048
  12. DIAMICRON [Concomitant]
     Dosage: 60 MG, QD
     Route: 048
  13. JANUVIA [Concomitant]
     Dosage: 100 MG, QD
     Route: 048

REACTIONS (24)
  - Cardiac disorder [Unknown]
  - Dilatation ventricular [Unknown]
  - Hypertrophic cardiomyopathy [Not Recovered/Not Resolved]
  - Left ventricular hypertrophy [Not Recovered/Not Resolved]
  - Paranoia [Unknown]
  - Cardiomyopathy [Unknown]
  - Hallucination, auditory [Unknown]
  - Left ventricular dysfunction [Recovering/Resolving]
  - Ejection fraction decreased [Recovering/Resolving]
  - Ventricular hypokinesia [Unknown]
  - Type 2 diabetes mellitus [Unknown]
  - Electrocardiogram ST-T change [Unknown]
  - Mental impairment [Unknown]
  - Blood urea nitrogen/creatinine ratio decreased [Not Recovered/Not Resolved]
  - Blood uric acid increased [Not Recovered/Not Resolved]
  - Blood phosphorus decreased [Not Recovered/Not Resolved]
  - Anxiety [Unknown]
  - Sleep disorder [Unknown]
  - Mood altered [Unknown]
  - Feeling abnormal [Unknown]
  - Stress [Unknown]
  - Alanine aminotransferase increased [Not Recovered/Not Resolved]
  - Blood creatine phosphokinase increased [Not Recovered/Not Resolved]
  - Gamma-glutamyltransferase increased [Not Recovered/Not Resolved]
